FAERS Safety Report 14939545 (Version 1)
Quarter: 2018Q2

REPORT INFORMATION
  Report Type: Spontaneous
  Country: US (occurrence: US)
  Receive Date: 20180507
  Receipt Date: 20180507
  Transmission Date: 20180711
  Serious: Yes (Hospitalization)
  Sender: FDA-Public Use
  Company Number: None

PATIENT
  Age: 32 Year
  Sex: Male

DRUGS (8)
  1. ALBUTEROL. [Concomitant]
     Active Substance: ALBUTEROL
  2. FELODIPINE. [Concomitant]
     Active Substance: FELODIPINE
  3. TACROLIMUS 1MG AND 0.5MG CAP [Suspect]
     Active Substance: TACROLIMUS
     Indication: RENAL TRANSPLANT
     Route: 048
     Dates: start: 20180203
  4. MYFORTIC [Suspect]
     Active Substance: MYCOPHENOLATE SODIUM
  5. ESCITALOPRAM [Concomitant]
     Active Substance: ESCITALOPRAM OXALATE
  6. PREDNISONE. [Concomitant]
     Active Substance: PREDNISONE
  7. LOSARTAN. [Concomitant]
     Active Substance: LOSARTAN
  8. PEPCID [Concomitant]
     Active Substance: FAMOTIDINE

REACTIONS (1)
  - Myocardial infarction [None]
